FAERS Safety Report 25661930 (Version 2)
Quarter: 2025Q4

REPORT INFORMATION
  Report Type: Spontaneous
  Country: US (occurrence: US)
  Receive Date: 20250809
  Receipt Date: 20251003
  Transmission Date: 20260117
  Serious: Yes (Other)
  Sender: TEVA
  Company Number: US-TEVA-VS-3358329

PATIENT
  Age: 32 Year
  Sex: Male

DRUGS (1)
  1. UZEDY [Suspect]
     Active Substance: RISPERIDONE
     Indication: Schizophrenia
     Dosage: INJECTABLE SUSPENSION, 125/0.35 MG/ML
     Route: 058

REACTIONS (2)
  - Schizophrenia [Unknown]
  - Therapeutic response shortened [Unknown]
